FAERS Safety Report 17935794 (Version 1)
Quarter: 2020Q2

REPORT INFORMATION
  Report Type: Spontaneous
  Country: AU (occurrence: AU)
  Receive Date: 20200624
  Receipt Date: 20200624
  Transmission Date: 20200714
  Serious: Yes (Other)
  Sender: FDA-Public Use
  Company Number: AU-IPSEN BIOPHARMACEUTICALS, INC.-2020-10895

PATIENT
  Age: 39 Year
  Sex: Female

DRUGS (1)
  1. DYSPORT [Suspect]
     Active Substance: ABOBOTULINUMTOXINA
     Indication: PRODUCT USED FOR UNKNOWN INDICATION
     Dosage: DOSE NOT REPORTED
     Route: 065

REACTIONS (6)
  - Vomiting [Unknown]
  - Emotional poverty [Unknown]
  - Panic attack [Unknown]
  - Anxiety [Unknown]
  - Suicidal ideation [Unknown]
  - Muscular weakness [Unknown]
